FAERS Safety Report 5141194-2 (Version None)
Quarter: 2006Q4

REPORT INFORMATION
  Report Type: 
  Country: None (occurrence: None)
  Receive Date: 20061101
  Receipt Date: 20061026
  Transmission Date: 20070319
  Serious: Yes (Life-Threatening, Other)
  Sender: FDA-Public Use
  Company Number: PHRM2006FR02924

PATIENT
  Age: 79 Year
  Sex: Female
  Weight: 88 kg

DRUGS (14)
  1. LORAZEPAM [Concomitant]
  2. ACETAMINOPHEN W/ PROPOXYPHENE HCL [Concomitant]
  3. ZOLOFT [Concomitant]
  4. XANAX [Concomitant]
  5. LOVENOX [Concomitant]
  6. COZAAR [Suspect]
     Dosage: 100 MG DAILY
     Route: 048
  7. HYPERIUM [Concomitant]
     Route: 048
  8. LASIX [Suspect]
     Route: 048
  9. ESIDRIX [Suspect]
     Dosage: 25 MG DAILY
     Route: 048
  10. FENOFIBRATE [Concomitant]
  11. NEURONTIN [Concomitant]
  12. ALLOPURINOL [Concomitant]
  13. GLUCOPHAGE [Concomitant]
     Indication: DIABETES MELLITUS
     Route: 048
  14. CELECTOL [Concomitant]
     Route: 048

REACTIONS (24)
  - ANAEMIA FOLATE DEFICIENCY [None]
  - ANAEMIA VITAMIN B12 DEFICIENCY [None]
  - ANURIA [None]
  - BLOOD CREATININE INCREASED [None]
  - BLOOD FOLATE DECREASED [None]
  - BLOOD THYROID STIMULATING HORMONE DECREASED [None]
  - BLOOD UREA INCREASED [None]
  - BONE OPERATION [None]
  - DEHYDRATION [None]
  - DRUG INTERACTION [None]
  - ESCHERICHIA URINARY TRACT INFECTION [None]
  - FEMUR FRACTURE [None]
  - HAEMODIALYSIS [None]
  - HYPERKALAEMIA [None]
  - HYPOCHROMIC ANAEMIA [None]
  - HYPOTENSION [None]
  - OEDEMA PERIPHERAL [None]
  - OLIGURIA [None]
  - OXYGEN SATURATION DECREASED [None]
  - PSYCHOMOTOR SKILLS IMPAIRED [None]
  - PYURIA [None]
  - RENAL FAILURE ACUTE [None]
  - RENAL TUBULAR NECROSIS [None]
  - VITAMIN B12 DECREASED [None]
